FAERS Safety Report 13730742 (Version 4)
Quarter: 2018Q1

REPORT INFORMATION
  Report Type: Spontaneous
  Country: US (occurrence: US)
  Receive Date: 20170707
  Receipt Date: 20180117
  Transmission Date: 20180508
  Serious: Yes (Hospitalization, Other)
  Sender: FDA-Public Use
  Company Number: US-JNJFOC-20170430638

PATIENT
  Age: 75 Year
  Sex: Female
  Weight: 56.25 kg

DRUGS (2)
  1. XARELTO [Suspect]
     Active Substance: RIVAROXABAN
     Indication: THROMBOSIS PROPHYLAXIS
     Route: 048
     Dates: start: 20151006, end: 20151031
  2. XARELTO [Suspect]
     Active Substance: RIVAROXABAN
     Indication: DEEP VEIN THROMBOSIS
     Route: 048
     Dates: start: 20151006, end: 20151031

REACTIONS (3)
  - Epistaxis [Recovered/Resolved]
  - Haemoptysis [Unknown]
  - Overdose [Unknown]

NARRATIVE: CASE EVENT DATE: 201510
